FAERS Safety Report 19127568 (Version 1)
Quarter: 2021Q2

REPORT INFORMATION
  Report Type: Spontaneous
  Country: US (occurrence: US)
  Receive Date: 20210413
  Receipt Date: 20210413
  Transmission Date: 20210717
  Serious: Yes (Other)
  Sender: FDA-Public Use
  Company Number: US-BAYER-2021-118322

PATIENT
  Age: 66 Year
  Sex: Female

DRUGS (5)
  1. ALKA?SELTZER PLUS SEVERE SINUS CONGESTION AND COUGH [Suspect]
     Active Substance: ACETAMINOPHEN\DEXTROMETHORPHAN HYDROBROMIDE\PHENYLEPHRINE HYDROCHLORIDE
     Indication: ALLERGIC RESPIRATORY SYMPTOM
     Dosage: 2 DF
     Route: 048
  2. ALKA?SELTZER PLUS MAXIMUM STRENGTH NIGHT COLD AND FLU POWERMAX GELS [Suspect]
     Active Substance: ACETAMINOPHEN\DEXTROMETHORPHAN HYDROBROMIDE\DOXYLAMINE SUCCINATE\PHENYLEPHRINE HYDROCHLORIDE
     Indication: NASOPHARYNGITIS
  3. ALKA?SELTZER EFFERVESCENT COLD [Concomitant]
     Active Substance: ACETAMINOPHEN\CHLORPHENIRAMINE\DEXTROMETHORPHAN\PHENYLEPHRINE
  4. ALKA?SELTZER PLUS SEVERE SINUS CONGESTION AND COUGH [Suspect]
     Active Substance: ACETAMINOPHEN\DEXTROMETHORPHAN HYDROBROMIDE\PHENYLEPHRINE HYDROCHLORIDE
     Indication: NASOPHARYNGITIS
  5. ALKA?SELTZER PLUS MAXIMUM STRENGTH NIGHT COLD AND FLU POWERMAX GELS [Suspect]
     Active Substance: ACETAMINOPHEN\DEXTROMETHORPHAN HYDROBROMIDE\DOXYLAMINE SUCCINATE\PHENYLEPHRINE HYDROCHLORIDE
     Indication: ALLERGIC RESPIRATORY SYMPTOM
     Dosage: 2 DF
     Route: 048

REACTIONS (1)
  - Choking [Recovered/Resolved]
